FAERS Safety Report 9496585 (Version 1)
Quarter: 2013Q3

REPORT INFORMATION
  Report Type: Spontaneous
  Country: FR (occurrence: None)
  Receive Date: 20130828
  Receipt Date: 20130828
  Transmission Date: 20140515
  Serious: Yes (Life-Threatening)
  Sender: FDA-Public Use
  Company Number: LTI2013A00149

PATIENT
  Age: 66 Year
  Sex: Male

DRUGS (13)
  1. OGASTORO [Suspect]
     Indication: PRODUCT USED FOR UNKNOWN INDICATION
     Dosage: 15 MG (15 MG, 1-2)
     Dates: start: 20130627, end: 20130627
  2. CYTARABINE (CYTARABINE) [Suspect]
     Indication: ACUTE MYELOID LEUKAEMIA
     Route: 042
     Dates: start: 20130627, end: 20130629
  3. ZAVEDOS [Suspect]
     Indication: ACUTE MYELOID LEUKAEMIA
     Dosage: 18 MG (10MG, 1 IN 1 D)
     Route: 042
     Dates: start: 20130627, end: 20130701
  4. VITAMINE K1 [Suspect]
     Indication: PRODUCT USED FOR UNKNOWN INDICATION
     Dates: start: 20130627
  5. PIPERACILLINE/TAZOBACTAM [Suspect]
     Indication: PRODUCT USED FOR UNKNOWN INDICATION
     Dosage: 12 GM (4 GM, 2 IN 1 D)
     Route: 042
     Dates: start: 20130627
  6. PARACETAMOL (PARACETAMOL) [Suspect]
     Indication: PRODUCT USED FOR UNKNOWN INDICATION
     Dosage: 3000 GM (500GM, 6 IN 1 D)?
     Dates: start: 20130627
  7. ONDANSETRON (ONDANSETRON) [Suspect]
     Indication: PRODUCT USED FOR UNKNOWN INDICATION
     Dosage: (2MG/ML, 1 IN 1 D)
     Route: 042
     Dates: start: 20130627
  8. HEPARINE CHOAY [Suspect]
     Indication: PRODUCT USED FOR UNKNOWN INDICATION
     Dosage: 6000 IU (5000 IU, 1 IN 1 D)
     Route: 042
     Dates: start: 20130627
  9. PRIPERAN (METOCLOPRAMIDE HYDROCHLORIDE) [Suspect]
     Dosage: (3 IN 1 D)
     Dates: start: 20130627
  10. ACUPAN [Suspect]
     Indication: PRODUCT USED FOR UNKNOWN INDICATION
     Dosage: (6 IN 1 D)
     Dates: start: 20130627
  11. BACTRIM [Suspect]
     Indication: PRODUCT USED FOR UNKNOWN INDICATION
     Dosage: (3 IN 1 D)
     Route: 048
     Dates: start: 20130627
  12. VALACICLOVIR ARROW [Suspect]
     Indication: PRODUCT USED FOR UNKNOWN INDICATION
     Dosage: 500 MG (500 MG, 1 IN 1 D)?
     Route: 048
     Dates: start: 20130627
  13. VERCYTE (PIPOBROMAN) [Concomitant]

REACTIONS (11)
  - Pulmonary alveolar haemorrhage [None]
  - Hypertension [None]
  - Pyrexia [None]
  - Bradypnoea [None]
  - Sinus tachycardia [None]
  - Livedo reticularis [None]
  - Thrombocytopenia [None]
  - Neurogenic shock [None]
  - Pulmonary toxicity [None]
  - Pneumonia [None]
  - Toxicity to various agents [None]
